FAERS Safety Report 5950980-8 (Version None)
Quarter: 2008Q4

REPORT INFORMATION
  Report Type: 
  Country: None (occurrence: None)
  Receive Date: 20081110
  Receipt Date: 20081031
  Transmission Date: 20090506
  Serious: Yes (Other)
  Sender: FDA-Public Use
  Company Number: 2008SP022227

PATIENT
  Age: 52 Year
  Sex: Male

DRUGS (2)
  1. PEG-INTRON [Suspect]
     Indication: HEPATITIS C
     Dosage: SC
     Route: 058
     Dates: start: 20080915
  2. RIBAVIRIN [Suspect]
     Indication: HEPATITIS C
     Dosage: PO
     Route: 048
     Dates: start: 20080915

REACTIONS (14)
  - ASTHENIA [None]
  - COUGH [None]
  - DEHYDRATION [None]
  - DIARRHOEA [None]
  - DRY THROAT [None]
  - GLOSSODYNIA [None]
  - HYPOPHAGIA [None]
  - INSOMNIA [None]
  - NOCTURIA [None]
  - PAIN [None]
  - PAROSMIA [None]
  - PYREXIA [None]
  - TONGUE DISORDER [None]
  - VOMITING [None]
